FAERS Safety Report 14315631 (Version 1)
Quarter: 2017Q4

REPORT INFORMATION
  Report Type: Spontaneous
  Country: US (occurrence: US)
  Receive Date: 20171221
  Receipt Date: 20171221
  Transmission Date: 20180321
  Serious: Yes (Hospitalization)
  Sender: FDA-Public Use
  Company Number: US-SA-2017SA252418

PATIENT

DRUGS (1)
  1. LEMTRADA [Suspect]
     Active Substance: ALEMTUZUMAB
     Route: 041

REACTIONS (6)
  - Blood creatinine increased [Recovering/Resolving]
  - Balance disorder [Recovering/Resolving]
  - White blood cell count increased [Recovering/Resolving]
  - Meningitis listeria [Recovering/Resolving]
  - Personality change [Recovering/Resolving]
  - Dizziness [Recovering/Resolving]
